FAERS Safety Report 8457890-5 (Version None)
Quarter: 2012Q2

REPORT INFORMATION
  Report Type: 
  Country: None (occurrence: None)
  Receive Date: 20120323
  Receipt Date: 20111005
  Transmission Date: 20120825
  Serious: Yes (Hospitalization, Other)
  Sender: FDA-Public Use
  Company Number: 163-21880-11100832

PATIENT
  Age: 63 Year
  Sex: Female
  Weight: 54.4 kg

DRUGS (1)
  1. REVLIMID [Suspect]
     Indication: MULTIPLE MYELOMA
     Dosage: 1 MG, 1 IN 1 D, PO
     Route: 048
     Dates: start: 20081108

REACTIONS (3)
  - DEEP VEIN THROMBOSIS [None]
  - DYSPNOEA [None]
  - PULMONARY EMBOLISM [None]
